FAERS Safety Report 12285943 (Version 1)
Quarter: 2016Q2

REPORT INFORMATION
  Report Type: Spontaneous
  Country: US (occurrence: None)
  Receive Date: 20160419
  Receipt Date: 20160419
  Transmission Date: 20160815
  Serious: No
  Sender: FDA-Public Use
  Company Number: None

PATIENT
  Age: 47 Year
  Sex: Male

DRUGS (1)
  1. HUMIRA [Suspect]
     Active Substance: ADALIMUMAB
     Indication: GASTROINTESTINAL HAEMORRHAGE
     Route: 058
     Dates: start: 20151027

REACTIONS (3)
  - Haemorrhage [None]
  - Pruritus generalised [None]
  - Scratch [None]

NARRATIVE: CASE EVENT DATE: 20151027
